FAERS Safety Report 24543736 (Version 4)
Quarter: 2024Q4

REPORT INFORMATION
  Report Type: Report from Study
  Country: CA (occurrence: CA)
  Receive Date: 20241024
  Receipt Date: 20241114
  Transmission Date: 20250114
  Serious: Yes (Other)
  Sender: BIOCON
  Company Number: CA-BIOCON BIOLOGICS LIMITED-2023M1104840

PATIENT

DRUGS (2)
  1. HULIO [Suspect]
     Active Substance: ADALIMUMAB-FKJP
     Indication: Crohn^s disease
     Dosage: 40 MILLIGRAM, BIWEEKLY (14)
     Route: 058
     Dates: start: 20220829
  2. HULIO [Suspect]
     Active Substance: ADALIMUMAB-FKJP
     Dosage: UNK
     Route: 058
     Dates: start: 20240829

REACTIONS (4)
  - Arteriovenous fistula site haemorrhage [Unknown]
  - Fistula [Unknown]
  - Arteriovenous fistula site complication [Unknown]
  - Diarrhoea [Unknown]
